FAERS Safety Report 19174327 (Version 1)
Quarter: 2021Q2

REPORT INFORMATION
  Report Type: Spontaneous
  Country: CH (occurrence: CH)
  Receive Date: 20210423
  Receipt Date: 20210423
  Transmission Date: 20210717
  Serious: Yes (Other)
  Sender: FDA-Public Use
  Company Number: CH-ORGANON-O2104CHE001545

PATIENT
  Age: 33 Year
  Sex: Female

DRUGS (1)
  1. IMPLANON NXT [Suspect]
     Active Substance: ETONOGESTREL
     Dosage: 1 DOSAGE FORM (1 IMPLANT ROD)
     Route: 059
     Dates: start: 20181014

REACTIONS (7)
  - Angina pectoris [Unknown]
  - Headache [Unknown]
  - Abdominal pain [Unknown]
  - Menstruation irregular [Unknown]
  - Hypokinesia [Unknown]
  - Abdominal distension [Unknown]
  - Pain in extremity [Unknown]

NARRATIVE: CASE EVENT DATE: 20191014
